FAERS Safety Report 8580929-3 (Version None)
Quarter: 2012Q3

REPORT INFORMATION
  Report Type: 
  Country: None (occurrence: None)
  Receive Date: 20120809
  Receipt Date: 20120730
  Transmission Date: 20120928
  Serious: Yes (Hospitalization)
  Sender: FDA-Public Use
  Company Number: KR-ACCORD-014322

PATIENT
  Age: 54 Year
  Sex: Male

DRUGS (2)
  1. MYCOPHENOLATE MOFETIL [Suspect]
     Indication: IMMUNOSUPPRESSION
     Dosage: DOSE REDUCED TO 1000 MG/DAY.
  2. PREDNISOLONE [Suspect]
     Indication: IMMUNOSUPPRESSION
     Dosage: 60MG/DAY WAS ALSO GIVEN GRADUALLY TAPERED OVER 7 WEEKS.

REACTIONS (1)
  - ATYPICAL MYCOBACTERIUM PERICARDITIS [None]
